FAERS Safety Report 17463446 (Version 4)
Quarter: 2020Q4

REPORT INFORMATION
  Report Type: Report from Study
  Country: DE (occurrence: DE)
  Receive Date: 20200226
  Receipt Date: 20201019
  Transmission Date: 20210113
  Serious: Yes (Death, Hospitalization)
  Sender: FDA-Public Use
  Company Number: NVSC2020DE004291

PATIENT
  Sex: Female
  Weight: 50 kg

DRUGS (3)
  1. FULVESTRANT. [Suspect]
     Active Substance: FULVESTRANT
     Dosage: 500MG (DAILY DOSE), Q4W
     Route: 030
     Dates: start: 20191205, end: 20200130
  2. KISQALI [Suspect]
     Active Substance: RIBOCICLIB
     Indication: BREAST CANCER METASTATIC
     Dosage: 200 MG (SCHEMA 21 DAYS INTAKE, 7 DAYS PAUSE)
     Route: 048
     Dates: start: 20191107, end: 20200130
  3. FULVESTRANT. [Suspect]
     Active Substance: FULVESTRANT
     Indication: BREAST CANCER METASTATIC
     Dosage: 250 MG (DAILY DOSE), Q2W
     Route: 030
     Dates: start: 20191107, end: 20191121

REACTIONS (9)
  - Urinary retention [Recovered/Resolved]
  - White blood cell count decreased [Unknown]
  - Urosepsis [Recovered/Resolved]
  - Malignant neoplasm progression [Fatal]
  - Breast cancer metastatic [Fatal]
  - Pneumonia [Fatal]
  - Sepsis [Fatal]
  - Multiple organ dysfunction syndrome [Fatal]
  - Pyrexia [Recovered/Resolved]

NARRATIVE: CASE EVENT DATE: 20191223
